FAERS Safety Report 14291576 (Version 1)
Quarter: 2017Q4

REPORT INFORMATION
  Report Type: Spontaneous
  Country: US (occurrence: US)
  Receive Date: 20171215
  Receipt Date: 20171215
  Transmission Date: 20180321
  Serious: No
  Sender: FDA-Public Use
  Company Number: US-LPDUSPRD-20170880

PATIENT
  Sex: Female

DRUGS (1)
  1. VENOFER [Suspect]
     Active Substance: IRON SUCROSE
     Dosage: 200 MG IV PUSH
     Route: 042

REACTIONS (5)
  - Pain in extremity [Unknown]
  - Burning sensation [Unknown]
  - Joint swelling [Unknown]
  - Peripheral swelling [Unknown]
  - Arthralgia [Unknown]
